FAERS Safety Report 23280740 (Version 1)
Quarter: 2023Q4

REPORT INFORMATION
  Report Type: Spontaneous
  Country: DE (occurrence: DE)
  Receive Date: 20231211
  Receipt Date: 20231211
  Transmission Date: 20240109
  Serious: Yes (Hospitalization)
  Sender: FDA-Public Use
  Company Number: DE-JNJFOC-20230809748

PATIENT
  Age: 8 Decade
  Sex: Female
  Weight: 65 kg

DRUGS (6)
  1. DEXAMETHASONE [Suspect]
     Active Substance: DEXAMETHASONE
     Indication: Plasma cell myeloma
     Dosage: 40.000MG
     Route: 042
     Dates: start: 20211228
  2. DEXAMETHASONE [Suspect]
     Active Substance: DEXAMETHASONE
     Dosage: 40.000MG
     Route: 042
     Dates: start: 20220127
  3. DARZALEX [Suspect]
     Active Substance: DARATUMUMAB
     Indication: Plasma cell myeloma
     Dosage: 16.000MG/KG
     Route: 042
     Dates: start: 20211226
  4. DARZALEX [Suspect]
     Active Substance: DARATUMUMAB
     Dosage: 16.000MG/KG
     Route: 042
     Dates: start: 20220224
  5. DARZALEX [Suspect]
     Active Substance: DARATUMUMAB
     Dosage: 16.000MG/KG
     Route: 042
     Dates: start: 20220616
  6. LENALIDOMIDE [Suspect]
     Active Substance: LENALIDOMIDE
     Indication: Plasma cell myeloma
     Dosage: 20.000MG
     Route: 048
     Dates: start: 20220127

REACTIONS (1)
  - Hepatitis E [Recovered/Resolved]

NARRATIVE: CASE EVENT DATE: 20230417
